FAERS Safety Report 10099115 (Version 1)
Quarter: 2014Q2

REPORT INFORMATION
  Report Type: Spontaneous
  Country: US (occurrence: US)
  Receive Date: 20140423
  Receipt Date: 20140423
  Transmission Date: 20141212
  Serious: No
  Sender: FDA-Public Use
  Company Number: US-TEVA-472924USA

PATIENT
  Sex: 0

DRUGS (1)
  1. COPAXONE 40 MG [Suspect]
     Indication: MULTIPLE SCLEROSIS

REACTIONS (3)
  - Injection site reaction [Recovered/Resolved]
  - Abdominal pain upper [Recovered/Resolved]
  - Palpitations [Recovered/Resolved]
